FAERS Safety Report 7976339-X (Version None)
Quarter: 2011Q4

REPORT INFORMATION
  Report Type: 
  Country: None (occurrence: None)
  Receive Date: 20111213
  Receipt Date: 20111018
  Transmission Date: 20120403
  Serious: No
  Sender: FDA-Public Use
  Company Number: US-AMGEN-USASP2011053785

PATIENT
  Age: 35 Year
  Sex: Male

DRUGS (1)
  1. ENBREL [Suspect]
     Indication: PSORIATIC ARTHROPATHY
     Dosage: 50 MG, QMO
     Dates: start: 20000101

REACTIONS (3)
  - PSORIATIC ARTHROPATHY [None]
  - INJECTION SITE MASS [None]
  - NASOPHARYNGITIS [None]
